FAERS Safety Report 4539257-5 (Version None)
Quarter: 2004Q4

REPORT INFORMATION
  Report Type: 
  Country: None (occurrence: None)
  Receive Date: 20041228
  Receipt Date: 20041217
  Transmission Date: 20050328
  Serious: Yes (Other)
  Sender: FDA-Public Use
  Company Number: US-JNJFOC-20041205438

PATIENT
  Sex: Male
  Weight: 87.54 kg

DRUGS (6)
  1. REMICADE [Suspect]
     Indication: RHEUMATOID ARTHRITIS
     Dosage: 50 DOSES
     Route: 042
  2. ANTIHYPERTENSIVE [Concomitant]
  3. NORVASC [Concomitant]
  4. HYZAAR [Concomitant]
  5. HYZAAR [Concomitant]
  6. ECOTRIN [Concomitant]

REACTIONS (2)
  - HERNIA [None]
  - UNEVALUABLE EVENT [None]
